FAERS Safety Report 5002802-X (Version None)
Quarter: 2006Q2

REPORT INFORMATION
  Report Type: 
  Country: None (occurrence: None)
  Receive Date: 20060516
  Receipt Date: 20060407
  Transmission Date: 20061013
  Serious: Yes (Death, Life-Threatening, Other)
  Sender: FDA-Public Use
  Company Number: PHBS2006JP05226

PATIENT
  Age: 65 Year
  Sex: Male

DRUGS (9)
  1. FLUDARABINE [Suspect]
     Dosage: 43 MG/D
     Route: 042
     Dates: end: 20050922
  2. FLUDARABINE [Suspect]
     Dosage: 150 MG/M2/D
     Route: 065
     Dates: start: 20050918
  3. MELPHALAN [Suspect]
     Dosage: 52.5 MG/D
     Route: 042
     Dates: end: 20050922
  4. MELPHALAN [Suspect]
     Dosage: 80 MG/M2/D
     Route: 065
     Dates: start: 20050921
  5. IRRADIATION [Suspect]
  6. DIURETICS [Concomitant]
  7. SANDIMMUNE [Suspect]
     Indication: CORD BLOOD TRANSPLANT THERAPY
     Dosage: 220 MG/D
     Route: 042
     Dates: start: 20050923, end: 20050930
  8. SANDIMMUNE [Suspect]
     Dosage: 60 MG/D
     Route: 042
     Dates: start: 20051001, end: 20051023
  9. SANDIMMUNE [Suspect]
     Dosage: UNK, UNK
     Route: 065
     Dates: start: 20030801

REACTIONS (15)
  - BLADDER DISORDER [None]
  - BLOOD BILIRUBIN INCREASED [None]
  - BLOOD UREA INCREASED [None]
  - BONE MARROW FAILURE [None]
  - BONE MARROW TRANSPLANT REJECTION [None]
  - C-REACTIVE PROTEIN INCREASED [None]
  - CARDIOTOXICITY [None]
  - FEBRILE NEUTROPENIA [None]
  - GASTROINTESTINAL TOXICITY [None]
  - HEPATIC VEIN OCCLUSION [None]
  - HEPATOTOXICITY [None]
  - MUCOSAL INFLAMMATION [None]
  - MULTI-ORGAN FAILURE [None]
  - NEPHROPATHY TOXIC [None]
  - VENOOCCLUSIVE LIVER DISEASE [None]
